FAERS Safety Report 7789754-4 (Version None)
Quarter: 2011Q3

REPORT INFORMATION
  Report Type: 
  Country: None (occurrence: None)
  Receive Date: 20110930
  Receipt Date: 20110413
  Transmission Date: 20111222
  Serious: No
  Sender: FDA-Public Use
  Company Number: US-ASTRAZENECA-2011SE04761

PATIENT
  Age: 71 Year
  Sex: Female

DRUGS (1)
  1. ARIMIDEX [Suspect]
     Route: 048

REACTIONS (8)
  - PELVIC INFLAMMATORY DISEASE [None]
  - VAGINAL DISCHARGE [None]
  - DYSSTASIA [None]
  - PELVIC PAIN [None]
  - ADVERSE EVENT [None]
  - GAIT DISTURBANCE [None]
  - BACK PAIN [None]
  - MOVEMENT DISORDER [None]
